FAERS Safety Report 14082282 (Version 3)
Quarter: 2017Q4

REPORT INFORMATION
  Report Type: Report from Study
  Country: IN (occurrence: IN)
  Receive Date: 20171013
  Receipt Date: 20171207
  Transmission Date: 20180321
  Serious: Yes (Other)
  Sender: FDA-Public Use
  Company Number: PHHY2017IN149193

PATIENT
  Age: 45 Year
  Sex: Male

DRUGS (4)
  1. SCAPHO [Suspect]
     Active Substance: SECUKINUMAB
     Dosage: 300 MG, QMO  (9TH DOSE)
     Route: 058
     Dates: start: 20171008
  2. SCAPHO [Suspect]
     Active Substance: SECUKINUMAB
     Dosage: 300 MG, QW (5TH DOSE)
     Route: 058
     Dates: start: 20170903
  3. SCAPHO [Suspect]
     Active Substance: SECUKINUMAB
     Indication: PSORIASIS
     Dosage: 300 MG, QW  (1ST DOSE)
     Route: 058
     Dates: start: 20170605
  4. SCAPHO [Suspect]
     Active Substance: SECUKINUMAB
     Dosage: 300 MG, QMO  (9TH DOSE)
     Route: 058
     Dates: start: 20171103

REACTIONS (4)
  - Inappropriate schedule of drug administration [Unknown]
  - Blood glucose abnormal [Recovering/Resolving]
  - Hypertension [Recovering/Resolving]
  - Peripheral swelling [Not Recovered/Not Resolved]

NARRATIVE: CASE EVENT DATE: 20171003
